FAERS Safety Report 4377624-3 (Version None)
Quarter: 2004Q2

REPORT INFORMATION
  Report Type: 
  Country: None (occurrence: None)
  Receive Date: 20040615
  Receipt Date: 20040601
  Transmission Date: 20050107
  Serious: Yes (Other)
  Sender: FDA-Public Use
  Company Number: DE-GLAXOSMITHKLINE-D0043923A

PATIENT
  Age: 7 Year
  Sex: Male

DRUGS (3)
  1. LAMICTAL [Suspect]
     Indication: EPILEPSY
     Dosage: 135MG PER DAY
     Route: 048
     Dates: start: 20040101
  2. ORFIRIL [Concomitant]
     Route: 065
  3. ETHOSUXIMIDE [Concomitant]
     Dosage: 250MG TWICE PER DAY
     Route: 065

REACTIONS (2)
  - AGGRESSION [None]
  - EXCITABILITY [None]
